FAERS Safety Report 5729852-X (Version None)
Quarter: 2008Q2

REPORT INFORMATION
  Report Type: 
  Country: None (occurrence: None)
  Receive Date: 20080502
  Receipt Date: 20080421
  Transmission Date: 20081010
  Serious: Yes (Other)
  Sender: FDA-Public Use
  Company Number: 2008010250

PATIENT
  Age: 83 Year
  Sex: Female
  Weight: 68.4932 kg

DRUGS (1)
  1. VISINE A.C. (ZINC SULFATE, TETRYZOLINE) [Suspect]
     Indication: EYE IRRITATION
     Dosage: 6 DROPS IN 2 DAYS, OPHTHALMIC
     Route: 047
     Dates: start: 20080420, end: 20080421

REACTIONS (1)
  - EYE IRRITATION [None]
